FAERS Safety Report 5587224-5 (Version None)
Quarter: 2008Q1

REPORT INFORMATION
  Report Type: 
  Country: None (occurrence: None)
  Receive Date: 20080110
  Receipt Date: 20070831
  Transmission Date: 20080703
  Serious: Yes (Other)
  Sender: FDA-Public Use
  Company Number: US-BRISTOL-MYERS SQUIBB COMPANY-13895313

PATIENT
  Age: 80 Year
  Sex: Female

DRUGS (1)
  1. CARDIOLITE [Suspect]
     Dates: start: 20070831, end: 20070831

REACTIONS (4)
  - CONVULSION [None]
  - HYPERHIDROSIS [None]
  - NAUSEA [None]
  - PALLOR [None]
